FAERS Safety Report 6287706-7 (Version None)
Quarter: 2009Q3

REPORT INFORMATION
  Report Type: 
  Country: None (occurrence: None)
  Receive Date: 20090717
  Receipt Date: 20090511
  Transmission Date: 20100115
  Serious: Yes (Other)
  Sender: FDA-Public Use
  Company Number: 2009SP010237

PATIENT
  Sex: Female

DRUGS (3)
  1. INTEGRILIN [Suspect]
     Indication: ANGIOPLASTY
     Dosage: 20 ML;QH;PARN
     Dates: start: 20090423, end: 20090424
  2. ASPIRIN [Concomitant]
  3. PLAVIX [Concomitant]

REACTIONS (1)
  - THROMBOCYTOPENIA [None]
